FAERS Safety Report 13603706 (Version 21)
Quarter: 2020Q3

REPORT INFORMATION
  Report Type: Other
  Country: CA (occurrence: CA)
  Receive Date: 20170602
  Receipt Date: 20200724
  Transmission Date: 20201102
  Serious: Yes (Other)
  Sender: FDA-Public Use
  Company Number: CA-ROCHE-1638435

PATIENT
  Age: 70 Year
  Sex: Female
  Weight: 73 kg

DRUGS (15)
  1. ACTEMRA [Suspect]
     Active Substance: TOCILIZUMAB
     Route: 042
     Dates: start: 20160120
  2. FISH OIL [Concomitant]
     Active Substance: FISH OIL
  3. ACTEMRA [Suspect]
     Active Substance: TOCILIZUMAB
     Route: 042
     Dates: start: 20160411, end: 2016
  4. ACTEMRA [Suspect]
     Active Substance: TOCILIZUMAB
     Dosage: ON 10/JUL/2018, THE PATIENT RECEIVED 560 MG EVERY 4 WEEKS.
     Route: 042
     Dates: start: 20170922, end: 20180117
  5. MORPHINE [Concomitant]
     Active Substance: MORPHINE
  6. PANTOPRAZOLE [Concomitant]
     Active Substance: PANTOPRAZOLE
  7. PLAVIX [Concomitant]
     Active Substance: CLOPIDOGREL BISULFATE
  8. RAMIPRIL. [Concomitant]
     Active Substance: RAMIPRIL
  9. TEMAZEPAM. [Concomitant]
     Active Substance: TEMAZEPAM
  10. GABAPENTINE [Concomitant]
     Active Substance: GABAPENTIN
  11. OXYCOCET [Concomitant]
     Active Substance: ACETAMINOPHEN\OXYCODONE HYDROCHLORIDE
  12. ACTEMRA [Suspect]
     Active Substance: TOCILIZUMAB
     Route: 042
     Dates: start: 20170525, end: 201706
  13. ACTEMRA [Suspect]
     Active Substance: TOCILIZUMAB
     Indication: RHEUMATOID ARTHRITIS
     Dosage: ON 17/JAN/2018 LAST INFUSION OF ACTEMRA WAS ADMINISTERED
     Route: 042
     Dates: start: 20150720, end: 20151221
  14. SIMVASTATIN. [Concomitant]
     Active Substance: SIMVASTATIN
  15. SYNTHROID [Concomitant]
     Active Substance: LEVOTHYROXINE SODIUM

REACTIONS (38)
  - Cyst [Not Recovered/Not Resolved]
  - Dyspnoea [Unknown]
  - Postoperative wound infection [Unknown]
  - Medication error [Unknown]
  - Blood pressure increased [Unknown]
  - Nasopharyngitis [Not Recovered/Not Resolved]
  - Ill-defined disorder [Unknown]
  - Heart rate decreased [Unknown]
  - Cough [Unknown]
  - Foot deformity [Recovered/Resolved]
  - Blood pressure increased [Unknown]
  - Blood pressure systolic increased [Unknown]
  - Fall [Unknown]
  - Weight increased [Unknown]
  - Cerebrovascular accident [Unknown]
  - Arthropathy [Not Recovered/Not Resolved]
  - Ejection fraction decreased [Unknown]
  - Chest pain [Not Recovered/Not Resolved]
  - Injection site extravasation [Unknown]
  - Underdose [Unknown]
  - Blood pressure systolic increased [Unknown]
  - Joint abscess [Not Recovered/Not Resolved]
  - Malaise [Unknown]
  - Peripheral swelling [Unknown]
  - Injection site extravasation [Recovered/Resolved]
  - Arthralgia [Not Recovered/Not Resolved]
  - Oxygen saturation decreased [Unknown]
  - Thrombosis [Recovering/Resolving]
  - Complication associated with device [Not Recovered/Not Resolved]
  - Urinary incontinence [Not Recovered/Not Resolved]
  - Osteomyelitis [Not Recovered/Not Resolved]
  - Joint swelling [Not Recovered/Not Resolved]
  - Blood pressure fluctuation [Unknown]
  - Pollakiuria [Not Recovered/Not Resolved]
  - Somnolence [Not Recovered/Not Resolved]
  - Pain in extremity [Unknown]
  - Rheumatoid arthritis [Not Recovered/Not Resolved]
  - Oxygen saturation decreased [Unknown]

NARRATIVE: CASE EVENT DATE: 20150923
